FAERS Safety Report 4837803-5 (Version None)
Quarter: 2005Q4

REPORT INFORMATION
  Report Type: 
  Country: None (occurrence: None)
  Receive Date: 20051123
  Receipt Date: 20051123
  Transmission Date: 20060501
  Serious: Yes (Death, Hospitalization)
  Sender: FDA-Public Use
  Company Number: None

PATIENT
  Sex: Male
  Weight: 85.8 kg

DRUGS (2)
  1. PEMETREXED [Suspect]
     Indication: CHONDROSARCOMA
     Dosage: SEE IMAGE
     Route: 042
     Dates: start: 20051110, end: 20051110
  2. PEMETREXED [Suspect]
     Indication: CHONDROSARCOMA
     Dosage: SEE IMAGE
     Route: 042
     Dates: start: 20051114

REACTIONS (17)
  - ANXIETY [None]
  - APNOEA [None]
  - ASPERGILLOSIS [None]
  - BLOOD PRESSURE DECREASED [None]
  - BRONCHIAL OBSTRUCTION [None]
  - CARDIAC ARREST [None]
  - CHILLS [None]
  - COUGH [None]
  - DYSPNOEA [None]
  - EMOTIONAL DISTRESS [None]
  - HYPOTENSION [None]
  - LOSS OF CONSCIOUSNESS [None]
  - MYDRIASIS [None]
  - OXYGEN SATURATION DECREASED [None]
  - PUPIL FIXED [None]
  - PYREXIA [None]
  - SPUTUM CULTURE POSITIVE [None]
